FAERS Safety Report 5163877-0 (Version None)
Quarter: 2006Q4

REPORT INFORMATION
  Report Type: 
  Country: None (occurrence: None)
  Receive Date: 20061204
  Receipt Date: 20020812
  Transmission Date: 20070319
  Serious: Yes (Life-Threatening, Hospitalization)
  Sender: FDA-Public Use
  Company Number: US-BRISTOL-MYERS SQUIBB COMPANY-11994407

PATIENT
  Age: 31 Year
  Sex: Female
  Weight: 105 kg

DRUGS (5)
  1. ZERIT [Suspect]
     Indication: HIV INFECTION
     Dosage: THERAPY THROUGHOUT PREGNANCY
     Route: 048
     Dates: start: 19980101, end: 20020606
  2. EPIVIR [Suspect]
     Indication: HIV INFECTION
     Dosage: THERAPY THROUGHOUT PREGNANCY
     Route: 048
     Dates: start: 19980101, end: 20020606
  3. NORVIR [Suspect]
     Indication: HIV INFECTION
     Dates: start: 20020101, end: 20020711
  4. SAQUINAVIR [Suspect]
     Indication: HIV INFECTION
     Dates: start: 20020101, end: 20020711
  5. VIRAMUNE [Concomitant]
     Indication: HIV INFECTION
     Dosage: THERAPY THROUGHOUT PREGNANCY
     Route: 048
     Dates: start: 19980101, end: 20020606

REACTIONS (9)
  - ALANINE AMINOTRANSFERASE INCREASED [None]
  - ASPARTATE AMINOTRANSFERASE INCREASED [None]
  - BLOOD LACTIC ACID INCREASED [None]
  - CHOLESTASIS [None]
  - HEPATIC STEATOSIS [None]
  - HEPATITIS C [None]
  - MITOCHONDRIAL TOXICITY [None]
  - PREGNANCY [None]
  - PREMATURE BABY [None]
